FAERS Safety Report 8386372-4 (Version None)
Quarter: 2012Q2

REPORT INFORMATION
  Report Type: 
  Country: None (occurrence: None)
  Receive Date: 20120525
  Receipt Date: 20120523
  Transmission Date: 20120825
  Serious: Yes (Other)
  Sender: FDA-Public Use
  Company Number: DE-SANOFI-AVENTIS-2012SA036414

PATIENT
  Age: 15 Year
  Sex: Female

DRUGS (2)
  1. ARAVA [Suspect]
     Indication: SERONEGATIVE ARTHRITIS
     Route: 048
     Dates: start: 20110701
  2. SULFASALAZINE [Concomitant]
     Indication: SERONEGATIVE ARTHRITIS
     Route: 048

REACTIONS (3)
  - MYOSITIS [None]
  - BLOOD CREATINE PHOSPHOKINASE INCREASED [None]
  - VERTIGO POSITIONAL [None]
